FAERS Safety Report 18789151 (Version 2)
Quarter: 2021Q1

REPORT INFORMATION
  Report Type: Report from Study
  Country: CA (occurrence: CA)
  Receive Date: 20210126
  Receipt Date: 20210211
  Transmission Date: 20210419
  Serious: Yes (Other)
  Sender: FDA-Public Use
  Company Number: CA-PFIZER INC-2021040370

PATIENT
  Age: 60 Year
  Sex: Female

DRUGS (38)
  1. METOCLOPRAMIDE HCL [Suspect]
     Active Substance: METOCLOPRAMIDE HYDROCHLORIDE
     Route: 065
  2. VALPROATE SEMISODIUM [Suspect]
     Active Substance: DIVALPROEX SODIUM
     Route: 065
  3. AMLODIPINE BESILATE [Suspect]
     Active Substance: AMLODIPINE BESYLATE
     Indication: MIGRAINE
     Dosage: UNK
     Route: 065
  4. ATENOLOL. [Suspect]
     Active Substance: ATENOLOL
     Dosage: UNK
     Route: 048
  5. TOPAMAX [Suspect]
     Active Substance: TOPIRAMATE
     Dosage: UNK
     Route: 065
  6. PROPANOLOL HCL [Suspect]
     Active Substance: PROPRANOLOL HYDROCHLORIDE
     Indication: MIGRAINE
     Dosage: UNK
     Route: 065
  7. CANDESARTAN. [Suspect]
     Active Substance: CANDESARTAN
     Indication: MIGRAINE
     Dosage: 16 MG 1 EVERY 1 DAYS
     Route: 048
  8. CANDESARTAN. [Suspect]
     Active Substance: CANDESARTAN
     Dosage: UNK
     Route: 065
  9. CORGARD [Suspect]
     Active Substance: NADOLOL
     Dosage: UNK
     Route: 065
  10. TOPIRAMATE. [Suspect]
     Active Substance: TOPIRAMATE
     Dosage: UNK
     Route: 065
  11. TOPIRAMATE. [Suspect]
     Active Substance: TOPIRAMATE
     Dosage: 75 MG
     Route: 065
  12. ZOPICLONE [Suspect]
     Active Substance: ZOPICLONE
     Indication: MIGRAINE
     Route: 065
  13. SODIUM VALPROATE [Concomitant]
     Active Substance: VALPROATE SODIUM
     Route: 065
  14. GABAPENTIN. [Suspect]
     Active Substance: GABAPENTIN
     Dosage: UNK
     Route: 065
  15. PROPANOLOL HCL [Suspect]
     Active Substance: PROPRANOLOL HYDROCHLORIDE
     Dosage: UNK
     Route: 065
  16. NORTRIPTYLINE [Suspect]
     Active Substance: NORTRIPTYLINE
     Route: 065
  17. ELAVIL [ALLOPURINOL] [Concomitant]
     Active Substance: ALLOPURINOL
     Dosage: 20 MG
     Route: 065
  18. TENORMIN [Concomitant]
     Active Substance: ATENOLOL
     Route: 065
  19. CLONIDINE. [Suspect]
     Active Substance: CLONIDINE
     Dosage: UNK
     Route: 065
  20. DESYREL [Suspect]
     Active Substance: TRAZODONE HYDROCHLORIDE
     Dosage: UNK
     Route: 065
  21. NAPROXEN. [Suspect]
     Active Substance: NAPROXEN
     Dosage: UNK
     Route: 065
  22. PREDNISONE. [Suspect]
     Active Substance: PREDNISONE
     Route: 065
  23. STEMETIL [PROCHLORPERAZINE] [Suspect]
     Active Substance: PROCHLORPERAZINE
     Route: 065
  24. VERAPAMIL HCL [Suspect]
     Active Substance: VERAPAMIL HYDROCHLORIDE
     Indication: MIGRAINE
     Dosage: UNK
     Route: 065
  25. DIHYDROERGOTAMINE [Suspect]
     Active Substance: DIHYDROERGOTAMINE
     Indication: MIGRAINE
     Dosage: UNK
     Route: 065
  26. PIZOTIFEN MALATE [Suspect]
     Active Substance: PIZOTYLINE MALEATE
     Dosage: UNK
     Route: 065
  27. TOPAMAX [Suspect]
     Active Substance: TOPIRAMATE
     Dosage: 75 MG
     Route: 065
  28. FROVATRIPTAN SUCCINATE. [Concomitant]
     Active Substance: FROVATRIPTAN SUCCINATE
     Dosage: UNK
     Route: 065
  29. GRAVOL [Concomitant]
     Active Substance: DIMENHYDRINATE
     Route: 065
  30. PROPANOLOL HCL [Suspect]
     Active Substance: PROPRANOLOL HYDROCHLORIDE
     Dosage: 40 MG, 2 EVERY 1 DAYS
     Route: 065
  31. VENLAFAXINE HCL [Suspect]
     Active Substance: VENLAFAXINE HYDROCHLORIDE
     Route: 065
  32. AIMOVIG [Suspect]
     Active Substance: ERENUMAB-AOOE
     Indication: MIGRAINE
     Route: 065
  33. LAMICTAL [Suspect]
     Active Substance: LAMOTRIGINE
     Route: 065
  34. MAXALT [Suspect]
     Active Substance: RIZATRIPTAN BENZOATE
     Dosage: UNK
     Route: 065
  35. NIFEDIPINE. [Suspect]
     Active Substance: NIFEDIPINE
     Route: 065
  36. NARATRIPTAN HYDROCHLORIDE. [Suspect]
     Active Substance: NARATRIPTAN HYDROCHLORIDE
     Dosage: UNK
     Route: 065
  37. BOTULINUM TOXIN TYPE A [Concomitant]
     Active Substance: BOTULINUM TOXIN TYPE A
     Route: 065
  38. TYLENOL [Concomitant]
     Active Substance: ACETAMINOPHEN
     Route: 065

REACTIONS (15)
  - Drug ineffective for unapproved indication [Unknown]
  - Paradoxical drug reaction [Unknown]
  - Dyspepsia [Unknown]
  - Weight decreased [Unknown]
  - Cough [Unknown]
  - Extrapyramidal disorder [Unknown]
  - Anuria [Unknown]
  - Neovascularisation [Unknown]
  - Diarrhoea [Unknown]
  - Migraine [Unknown]
  - Abdominal pain [Unknown]
  - Dyspnoea [Unknown]
  - Treatment failure [Unknown]
  - Drug ineffective [Unknown]
  - Nausea [Unknown]
